FAERS Safety Report 5852907-6 (Version None)
Quarter: 2008Q3

REPORT INFORMATION
  Report Type: 
  Country: None (occurrence: None)
  Receive Date: 20080821
  Receipt Date: 20080819
  Transmission Date: 20090109
  Serious: Yes (Death, Hospitalization)
  Sender: FDA-Public Use
  Company Number: PHHY2008PH18570

PATIENT
  Age: 58 Year
  Sex: Female

DRUGS (3)
  1. EXJADE [Suspect]
     Indication: SERUM FERRITIN INCREASED
     Dosage: 125 MG DAILY
     Route: 048
  2. EPOGEN [Concomitant]
  3. CARDIAC THERAPY [Concomitant]

REACTIONS (2)
  - ABDOMINAL PAIN UPPER [None]
  - DEATH [None]
